FAERS Safety Report 7318885-8 (Version None)
Quarter: 2011Q1

REPORT INFORMATION
  Report Type: 
  Country: None (occurrence: None)
  Receive Date: 20110228
  Receipt Date: 20101213
  Transmission Date: 20110831
  Serious: No
  Sender: FDA-Public Use
  Company Number: US-MYLANLABS-2010S1022883

PATIENT
  Age: 50 Year
  Sex: Male
  Weight: 86.18 kg

DRUGS (1)
  1. VALACYCLOVIR HYDROCHLORIDE [Suspect]
     Indication: NEURALGIA
     Route: 048
     Dates: start: 20101208, end: 20101211

REACTIONS (4)
  - NEURALGIA [None]
  - CHEST PAIN [None]
  - DRUG INEFFECTIVE FOR UNAPPROVED INDICATION [None]
  - DYSPNOEA [None]
